FAERS Safety Report 7294206-4 (Version None)
Quarter: 2011Q1

REPORT INFORMATION
  Report Type: 
  Country: None (occurrence: None)
  Receive Date: 20110215
  Receipt Date: 20110210
  Transmission Date: 20110831
  Serious: Yes (Other)
  Sender: FDA-Public Use
  Company Number: US-JNJCH-2011003749

PATIENT
  Age: 6 Year
  Sex: Male
  Weight: 22.7 kg

DRUGS (1)
  1. FRESHBURST LISTERINE MOUTHWASH [Suspect]
     Indication: ACCIDENTAL EXPOSURE
     Dosage: TEXT:^LITTLE BIT IN THE LID^ ONCE PER DAY
     Route: 048
     Dates: start: 20110206, end: 20110208

REACTIONS (5)
  - OROPHARYNGEAL BLISTERING [None]
  - LIP DISORDER [None]
  - GLOSSODYNIA [None]
  - WRONG DRUG ADMINISTERED [None]
  - LIP SWELLING [None]
